FAERS Safety Report 8578315-5 (Version None)
Quarter: 2012Q3

REPORT INFORMATION
  Report Type: 
  Country: None (occurrence: None)
  Receive Date: 20120808
  Receipt Date: 20120731
  Transmission Date: 20120928
  Serious: Yes (Hospitalization)
  Sender: FDA-Public Use
  Company Number: FR-JNJFOC-20120609880

PATIENT
  Sex: Male
  Weight: 40 kg

DRUGS (3)
  1. INFLIXIMAB, RECOMBINANT [Suspect]
     Indication: CROHN'S DISEASE
     Route: 042
     Dates: start: 20081213
  2. HUMIRA [Concomitant]
     Dates: start: 20091216
  3. VANCOMYCIN [Concomitant]

REACTIONS (1)
  - GASTROSTOMY [None]
